FAERS Safety Report 10785196 (Version 2)
Quarter: 2015Q1

REPORT INFORMATION
  Report Type: Spontaneous
  Country: GB (occurrence: GB)
  Receive Date: 20150211
  Receipt Date: 20150218
  Transmission Date: 20150721
  Serious: Yes (Death, Hospitalization, Other)
  Sender: FDA-Public Use
  Company Number: GB-CELGENE-167-21660-14023171

PATIENT
  Age: 42 Year
  Sex: Female
  Weight: 64 kg

DRUGS (6)
  1. DOMPERIDONE [Suspect]
     Active Substance: DOMPERIDONE
     Indication: ANTIEMETIC SUPPORTIVE CARE
     Route: 048
  2. NEULASTA [Concomitant]
     Active Substance: PEGFILGRASTIM
     Indication: PROPHYLAXIS
     Dosage: 250 MILLIGRAM
     Route: 058
     Dates: start: 20140208
  3. SODIUM CHLORIDE. [Concomitant]
     Active Substance: SODIUM CHLORIDE
     Indication: BREAST CANCER
     Route: 065
     Dates: start: 20140207, end: 20140207
  4. ABRAXANE [Suspect]
     Active Substance: PACLITAXEL
     Indication: BREAST CANCER METASTATIC
     Dosage: 430 MILLIGRAM
     Route: 041
     Dates: start: 20140207
  5. PALOXI [Suspect]
     Active Substance: PALONOSETRON HYDROCHLORIDE
     Indication: ANTIEMETIC SUPPORTIVE CARE
     Route: 041
     Dates: start: 20140207
  6. FLUCONAZOLE. [Concomitant]
     Active Substance: FLUCONAZOLE
     Indication: ORAL CANDIDIASIS
     Route: 048
     Dates: start: 20140212, end: 20140213

REACTIONS (9)
  - Mucosal inflammation [Not Recovered/Not Resolved]
  - Breast cancer metastatic [Fatal]
  - Oropharyngeal pain [Not Recovered/Not Resolved]
  - Renal failure [Fatal]
  - Hypophagia [Not Recovered/Not Resolved]
  - Oral candidiasis [Unknown]
  - Pain in extremity [Not Recovered/Not Resolved]
  - Pyrexia [Unknown]
  - Malaise [Unknown]

NARRATIVE: CASE EVENT DATE: 20140210
